FAERS Safety Report 9853357 (Version 3)
Quarter: 2015Q3

REPORT INFORMATION
  Report Type: Report from Study
  Country: JP (occurrence: JP)
  Receive Date: 20140129
  Receipt Date: 20150803
  Transmission Date: 20151125
  Serious: Yes (Other)
  Sender: FDA-Public Use
  Company Number: PHHY2010JP87951

PATIENT
  Age: 39 Year
  Sex: Female

DRUGS (13)
  1. CLOZARIL [Suspect]
     Active Substance: CLOZAPINE
     Indication: SCHIZOPHRENIA, PARANOID TYPE
     Dosage: 12.5 MG, QD
     Route: 048
     Dates: start: 20101118, end: 20101118
  2. CLOZARIL [Suspect]
     Active Substance: CLOZAPINE
     Dosage: 150 MG, QD
     Route: 048
     Dates: start: 20101202, end: 20101209
  3. CLOZARIL [Suspect]
     Active Substance: CLOZAPINE
     Dosage: 25 MG, QD
     Route: 048
     Dates: start: 20101119, end: 20101121
  4. CLOZARIL [Suspect]
     Active Substance: CLOZAPINE
     Dosage: 50 MG, QD
     Route: 048
     Dates: start: 20101122, end: 20101124
  5. CLOZARIL [Suspect]
     Active Substance: CLOZAPINE
     Dosage: 75 MG, QD
     Route: 048
     Dates: start: 20101125, end: 20101126
  6. CLOZARIL [Suspect]
     Active Substance: CLOZAPINE
     Dosage: 200 MG, QD
     Route: 048
     Dates: start: 20101210, end: 20101211
  7. CLOZARIL [Suspect]
     Active Substance: CLOZAPINE
     Dosage: 250 MG, QD
     Route: 048
     Dates: start: 20101212, end: 20101215
  8. CLOZARIL [Suspect]
     Active Substance: CLOZAPINE
     Dosage: 100 MG, QD
     Route: 048
     Dates: start: 20101229, end: 20110110
  9. CLOZARIL [Suspect]
     Active Substance: CLOZAPINE
     Dosage: 100 MG, QD
     Route: 048
     Dates: start: 20101127, end: 20101128
  10. CLOZARIL [Suspect]
     Active Substance: CLOZAPINE
     Dosage: 300 MG, QD
     Route: 048
     Dates: start: 20101216, end: 20101219
  11. CLOZARIL [Suspect]
     Active Substance: CLOZAPINE
     Dosage: 50 MG, QD
     Route: 048
     Dates: start: 20110111, end: 20110114
  12. CLOZARIL [Suspect]
     Active Substance: CLOZAPINE
     Dosage: 125 MG, QD
     Route: 048
     Dates: start: 20101129, end: 20101201
  13. CLOZARIL [Suspect]
     Active Substance: CLOZAPINE
     Dosage: 200 MG, QD
     Route: 048
     Dates: start: 20101220, end: 20101228

REACTIONS (4)
  - Body temperature decreased [Recovered/Resolved]
  - Drug-induced liver injury [Recovering/Resolving]
  - Heart rate increased [Not Recovered/Not Resolved]
  - Seizure [Recovering/Resolving]

NARRATIVE: CASE EVENT DATE: 20101217
